FAERS Safety Report 14377973 (Version 1)
Quarter: 2018Q1

REPORT INFORMATION
  Report Type: Spontaneous
  Country: KR (occurrence: KR)
  Receive Date: 20180111
  Receipt Date: 20180111
  Transmission Date: 20180509
  Serious: Yes (Other)
  Sender: FDA-Public Use
  Company Number: KR-GEHC-2018CSU000099

PATIENT

DRUGS (4)
  1. OMNISCAN [Suspect]
     Active Substance: GADODIAMIDE
     Dosage: UNK, SINGLE
     Route: 042
  2. OMNISCAN [Suspect]
     Active Substance: GADODIAMIDE
     Dosage: UNK, SINGLE
     Route: 042
     Dates: start: 201101, end: 201101
  3. OMNISCAN [Suspect]
     Active Substance: GADODIAMIDE
     Dosage: UNK, SINGLE
     Route: 042
  4. OMNISCAN [Suspect]
     Active Substance: GADODIAMIDE
     Indication: MOYAMOYA DISEASE
     Dosage: UNK, SINGLE
     Route: 042
     Dates: start: 200707, end: 200707

REACTIONS (1)
  - Contrast media deposition [Unknown]
